FAERS Safety Report 4978899-X (Version None)
Quarter: 2006Q2

REPORT INFORMATION
  Report Type: 
  Country: None (occurrence: None)
  Receive Date: 20060421
  Receipt Date: 20060420
  Transmission Date: 20061013
  Serious: Yes (Hospitalization)
  Sender: FDA-Public Use
  Company Number: US-RB-3142-2006

PATIENT
  Sex: Male
  Weight: 90.8 kg

DRUGS (3)
  1. SUBOXONE [Suspect]
     Indication: DRUG DEPENDENCE
     Route: 060
     Dates: start: 20060215
  2. VENLAFAXINE HCL [Concomitant]
     Indication: DEPRESSION
     Route: 048
     Dates: start: 20060405
  3. ESCITALOPRAM OXALATE [Concomitant]
     Indication: DEPRESSION
     Dosage: PATIENT REPORTS STARTED ONE YEAR AGO.
     Route: 048
     Dates: end: 20060404

REACTIONS (3)
  - DIFFICULTY IN WALKING [None]
  - DYSPNOEA [None]
  - OEDEMA PERIPHERAL [None]
